FAERS Safety Report 7989635 (Version 2)
Quarter: 2014Q1

REPORT INFORMATION
  Report Type: Spontaneous
  Country: US (occurrence: US)
  Receive Date: 20110614
  Receipt Date: 20140127
  Transmission Date: 20141002
  Serious: Yes (Hospitalization)
  Sender: FDA-Public Use
  Company Number: US-RANBAXY-2011US-45019

PATIENT
  Age: 13 Year
  Sex: Male
  Weight: 53.2 kg

DRUGS (6)
  1. ONDANSETRON [Suspect]
     Indication: PRODUCT USED FOR UNKNOWN INDICATION
     Dosage: UNK
     Route: 065
  2. SEVOFLURANE [Interacting]
     Indication: GENERAL ANAESTHESIA
     Dosage: UNK
     Route: 055
  3. DESFLURANE [Interacting]
     Indication: GENERAL ANAESTHESIA
     Dosage: UNK
     Route: 055
  4. VECURONIUM [Interacting]
     Indication: PRODUCT USED FOR UNKNOWN INDICATION
     Dosage: UNK
     Route: 065
  5. NADOLOL [Concomitant]
     Indication: PRODUCT USED FOR UNKNOWN INDICATION
     Dosage: 20 MG, BID
     Route: 065
  6. MEXILETINE [Concomitant]
     Indication: PRODUCT USED FOR UNKNOWN INDICATION
     Route: 065

REACTIONS (3)
  - Ventricular tachycardia [Recovered/Resolved]
  - Drug interaction [Recovered/Resolved]
  - Extrasystoles [Recovered/Resolved]
